FAERS Safety Report 7617539-8 (Version None)
Quarter: 2011Q3

REPORT INFORMATION
  Report Type: 
  Country: None (occurrence: None)
  Receive Date: 20110718
  Receipt Date: 20110708
  Transmission Date: 20111222
  Serious: Yes (Hospitalization, Other)
  Sender: FDA-Public Use
  Company Number: FR-JNJFOC-20110308545

PATIENT
  Sex: Male

DRUGS (9)
  1. CLOPIDOGREL [Concomitant]
     Indication: HYPERTENSION
     Route: 048
  2. GALANTAMINE HYDROBROMIDE [Suspect]
     Indication: DEMENTIA
     Route: 048
     Dates: end: 20110203
  3. ALL OTHER THERAPEUTICS [Interacting]
     Indication: PRODUCT USED FOR UNKNOWN INDICATION
     Route: 065
  4. MOVIPREP [Concomitant]
     Route: 065
  5. VALDOXAN (AGOMELATINE) [Concomitant]
     Indication: DEPRESSION
     Route: 048
     Dates: start: 20110103, end: 20110215
  6. XANAX [Concomitant]
     Route: 048
  7. CALCIUM CARBONATE [Concomitant]
     Route: 065
  8. AMLODIPINE BESYLATE [Concomitant]
     Indication: HYPERTENSION
     Route: 048
     Dates: end: 20110125
  9. RABEPRAZOLE SODIUM [Concomitant]
     Indication: HYPERTENSION
     Route: 065

REACTIONS (8)
  - MALAISE [None]
  - BRADYCARDIA [None]
  - HYPOTENSION [None]
  - DRUG INTERACTION [None]
  - PALLOR [None]
  - LOSS OF CONSCIOUSNESS [None]
  - VERTIGO [None]
  - NERVOUS SYSTEM DISORDER [None]
